FAERS Safety Report 5369359-5 (Version None)
Quarter: 2007Q2

REPORT INFORMATION
  Report Type: 
  Country: None (occurrence: None)
  Receive Date: 20070625
  Receipt Date: 20070423
  Transmission Date: 20071010
  Serious: Yes (Hospitalization)
  Sender: FDA-Public Use
  Company Number: US-ASTRAZENECA-2007UW05983

PATIENT
  Age: 58 Year
  Sex: Female

DRUGS (9)
  1. CRESTOR [Suspect]
     Route: 048
     Dates: start: 20060101
  2. SINGULAIR [Concomitant]
  3. TOPROL-XL [Concomitant]
  4. PROZAC [Concomitant]
  5. GLUCOPHAGE [Concomitant]
  6. SYNTHROID [Concomitant]
  7. TRAZODONE HCL [Concomitant]
  8. LISINOPRIL [Concomitant]
  9. ASPIRIN [Concomitant]

REACTIONS (1)
  - RHABDOMYOLYSIS [None]
